FAERS Safety Report 9556127 (Version 2)
Quarter: 2013Q4

REPORT INFORMATION
  Report Type: Spontaneous
  Country: US (occurrence: None)
  Receive Date: 20130724
  Receipt Date: 20131226
  Transmission Date: 20140711
  Serious: Yes (Other)
  Sender: FDA-Public Use
  Company Number: PHEH2013US006483

PATIENT
  Age: 58 Year
  Sex: Male
  Weight: 76.2 kg

DRUGS (1)
  1. GILENYA (FINGOLIMOD) CAPSULE , 0.5MG [Suspect]
     Dosage: , ORAL
     Route: 048

REACTIONS (3)
  - Lymphocyte count decreased [None]
  - White blood cell count decreased [None]
  - Overdose [None]
